FAERS Safety Report 20995493 (Version 6)
Quarter: 2024Q1

REPORT INFORMATION
  Report Type: Report from Study
  Country: US (occurrence: US)
  Receive Date: 20220622
  Receipt Date: 20240215
  Transmission Date: 20240410
  Serious: Yes (Other)
  Sender: FDA-Public Use
  Company Number: US-ABBVIE-22K-163-4441777-00

PATIENT
  Sex: Female

DRUGS (4)
  1. IMBRUVICA [Suspect]
     Active Substance: IBRUTINIB
     Indication: Waldenstrom^s macroglobulinaemia
     Dosage: TIME INTERVAL: 0.33333333 DAYS: DISCONTINUED IN 2018
     Route: 048
     Dates: start: 201808
  2. IMBRUVICA [Suspect]
     Active Substance: IBRUTINIB
     Indication: Waldenstrom^s macroglobulinaemia
     Dosage: TIME INTERVAL: 0.33333333 DAYS
     Route: 048
     Dates: start: 20181204
  3. IMBRUVICA [Suspect]
     Active Substance: IBRUTINIB
     Indication: Waldenstrom^s macroglobulinaemia
     Dosage: DISCONTINUED IN DEC 2018
     Route: 048
     Dates: start: 201812
  4. IMBRUVICA [Suspect]
     Active Substance: IBRUTINIB
     Indication: Waldenstrom^s macroglobulinaemia
     Dosage: TIME INTERVAL: 0.33333333 DAYS
     Route: 048
     Dates: start: 201804, end: 20181203

REACTIONS (21)
  - Spinal fracture [Unknown]
  - Nasal congestion [Unknown]
  - Loss of personal independence in daily activities [Unknown]
  - Neuronal neuropathy [Unknown]
  - Dysuria [Unknown]
  - Diarrhoea [Unknown]
  - Dyspnoea [Unknown]
  - Mobility decreased [Unknown]
  - Nephrolithiasis [Unknown]
  - Nephrolithiasis [Unknown]
  - Renal cyst [Unknown]
  - Fall [Unknown]
  - COVID-19 [Unknown]
  - Pain in extremity [Unknown]
  - Peripheral swelling [Unknown]
  - Rash macular [Unknown]
  - Faeces hard [Unknown]
  - Dysstasia [Unknown]
  - Full blood count abnormal [Unknown]
  - Skin haemorrhage [Unknown]
  - Constipation [Unknown]
